FAERS Safety Report 8000758-9 (Version None)
Quarter: 2011Q4

REPORT INFORMATION
  Report Type: 
  Country: None (occurrence: None)
  Receive Date: 20111222
  Receipt Date: 20111215
  Transmission Date: 20120403
  Serious: Yes (Hospitalization)
  Sender: FDA-Public Use
  Company Number: AU-BRISTOL-MYERS SQUIBB COMPANY-16092819

PATIENT
  Age: 69 Year
  Sex: Male

DRUGS (15)
  1. WARFARIN SODIUM [Concomitant]
     Dates: end: 20110918
  2. EFFEXOR XR [Concomitant]
  3. COLOXYL + SENNA [Concomitant]
     Dates: end: 20110915
  4. MAGNESIUM [Concomitant]
  5. OXYCODONE HCL [Concomitant]
  6. CISPLATIN [Suspect]
     Indication: NON-SMALL CELL LUNG CANCER
     Dosage: INTERRUPTED ON 15SEP11.(01JUL-15SEP11:77DAYS) RESTARTED ON 22SEP11.
     Route: 065
     Dates: start: 20110701
  7. MAXOLON [Concomitant]
  8. PERINDOPRIL [Concomitant]
     Dates: start: 20110915
  9. ONDANSETRON [Concomitant]
  10. ACETAMINOPHEN [Concomitant]
  11. LACTULOSE [Concomitant]
  12. METOPROLOL TARTRATE [Concomitant]
     Dates: start: 20110913
  13. GEMCITABINE [Suspect]
     Indication: NON-SMALL CELL LUNG CANCER
     Dosage: INTERRUPTED ON 15SEP11.(01JUL-15SEP11:77DAYS) RESTARTED ON 22SEP11.
     Route: 065
     Dates: start: 20110701
  14. OMEPRAZOLE [Concomitant]
  15. DIGOXIN [Concomitant]

REACTIONS (1)
  - DYSPNOEA [None]
